APPROVED DRUG PRODUCT: PIROXICAM
Active Ingredient: PIROXICAM
Strength: 10MG
Dosage Form/Route: CAPSULE;ORAL
Application: A208340 | Product #001 | TE Code: AB
Applicant: UNICHEM LABORATORIES LTD
Approved: Apr 13, 2017 | RLD: No | RS: No | Type: RX